FAERS Safety Report 23300081 (Version 1)
Quarter: 2023Q4

REPORT INFORMATION
  Report Type: Report from Study
  Country: NL (occurrence: NL)
  Receive Date: 20231215
  Receipt Date: 20231215
  Transmission Date: 20240110
  Serious: Yes (Other)
  Sender: FDA-Public Use
  Company Number: NL-ABBVIE-5536222

PATIENT
  Age: 64 Year
  Sex: Male

DRUGS (6)
  1. CARBIDOPA\LEVODOPA [Suspect]
     Active Substance: CARBIDOPA\LEVODOPA
     Indication: Parkinson^s disease
     Dosage: MD: 7.0 ML, CD: 4.2 ML/H, ED: 2.0ML; END: 2.0ML; CND: 3.1M;/H?DURATION TEXT: REMAINS AT 24 HOURS
     Route: 050
     Dates: start: 20230804, end: 20230818
  2. CARBIDOPA\LEVODOPA [Suspect]
     Active Substance: CARBIDOPA\LEVODOPA
     Dosage: DURATION TEXT: REMAINS AT 24 HOURS
     Route: 050
     Dates: start: 20210913
  3. CARBIDOPA\LEVODOPA [Suspect]
     Active Substance: CARBIDOPA\LEVODOPA
     Dosage: MD: 7.0 ML, CD: 4.2 ML/H, ED: 2.0ML; REMAINS AT 16 HOURS
     Route: 050
     Dates: start: 20231108
  4. CARBIDOPA\LEVODOPA [Suspect]
     Active Substance: CARBIDOPA\LEVODOPA
     Dosage: MD: 9.0 ML, CD: 4.2 ML/H, ED: 2.0ML?DURATION TEXT: REMAINS AT 16 HOURS
     Route: 050
     Dates: start: 20230524, end: 20230606
  5. CARBIDOPA\LEVODOPA [Suspect]
     Active Substance: CARBIDOPA\LEVODOPA
     Dosage: ND: 2.0ML; CND: 3.4M;/H?REMAINS AT 24 HOURS
     Route: 050
     Dates: start: 20230818, end: 20231109
  6. CARBIDOPA\LEVODOPA [Suspect]
     Active Substance: CARBIDOPA\LEVODOPA
     Dosage: CD: 2.8 ML/H, ED: 2.0ML?DURATION TEXT: REMAINS AT 16 HOURS
     Route: 050
     Dates: start: 20230606, end: 20230804

REACTIONS (1)
  - Intestinal obstruction [Not Recovered/Not Resolved]
